FAERS Safety Report 26172021 (Version 1)
Quarter: 2025Q4

REPORT INFORMATION
  Report Type: Spontaneous
  Country: JP (occurrence: JP)
  Receive Date: 20251217
  Receipt Date: 20251217
  Transmission Date: 20260117
  Serious: Yes (Hospitalization)
  Sender: MERCK SHARP & DOHME LLC
  Company Number: JP-009507513-2360227

PATIENT
  Age: 69 Year
  Sex: Female

DRUGS (2)
  1. PEMBROLIZUMAB [Suspect]
     Active Substance: PEMBROLIZUMAB
     Indication: Neoplasm malignant
  2. AXITINIB [Suspect]
     Active Substance: AXITINIB
     Indication: Neoplasm malignant

REACTIONS (2)
  - Immune-mediated myocarditis [Recovered/Resolved]
  - Cardiogenic shock [Recovered/Resolved]
